FAERS Safety Report 5008043-4 (Version None)
Quarter: 2006Q1

REPORT INFORMATION
  Report Type: 
  Country: None (occurrence: None)
  Receive Date: 20060329
  Receipt Date: 20051220
  Transmission Date: 20060701
  Serious: Yes (Hospitalization)
  Sender: FDA-Public Use
  Company Number: 2005-04907

PATIENT
  Age: 80 Year
  Sex: Female

DRUGS (7)
  1. OXYTROL [Suspect]
     Indication: URINARY INCONTINENCE
     Dosage: 1 PATCH, 2/WEEK, TRANSDERMAL
     Route: 062
     Dates: start: 20030101, end: 20051101
  2. OXYTROL [Suspect]
     Indication: URINARY INCONTINENCE
     Dosage: 1 PATCH, 2/WEEK, TRANSDERMAL
     Route: 062
     Dates: start: 20051101
  3. DAYPRO [Suspect]
     Indication: OSTEOARTHRITIS
     Dosage: 1 TABLET, BID, ORAL
     Route: 048
     Dates: start: 19970101, end: 20051101
  4. IBUPROFEN [Suspect]
     Indication: OSTEOARTHRITIS
     Dosage: 1 TABLET, TID, ORAL
     Route: 048
     Dates: start: 20050901, end: 20051101
  5. DITROPAN XL [Concomitant]
  6. ROBINUL (GLYCOPYRRONIUM BROMIDE) [Concomitant]
  7. PROCHLORPERAZINE MALEATE [Concomitant]

REACTIONS (4)
  - COLITIS ULCERATIVE [None]
  - CONDITION AGGRAVATED [None]
  - DRUG INEFFECTIVE [None]
  - HAEMATOCHEZIA [None]
